FAERS Safety Report 9422877 (Version 1)
Quarter: 2013Q3

REPORT INFORMATION
  Report Type: Spontaneous
  Country: CO (occurrence: CO)
  Receive Date: 20130726
  Receipt Date: 20130726
  Transmission Date: 20140515
  Serious: Yes (Other)
  Sender: FDA-Public Use
  Company Number: CO-AMGEN-COLSP2013014428

PATIENT
  Age: 53 Year
  Sex: Female

DRUGS (8)
  1. ENBREL [Suspect]
     Indication: RHEUMATOID ARTHRITIS
     Dosage: 50 MG, EACH 15 DAYS
     Route: 058
     Dates: start: 201211
  2. PREDNISOL /00016202/ [Suspect]
     Indication: PAIN
     Dosage: UNK UNK, TID
     Route: 048
     Dates: start: 2001, end: 20130502
  3. METHOTREXATE [Concomitant]
     Indication: PROPHYLAXIS
     Dosage: 2 TABLETS SATURDAY AND 2 TABLETS ON SUNDAY, WEEKLY
     Route: 048
     Dates: start: 2000
  4. METHOTREXATE [Concomitant]
     Indication: BONE DISORDER
     Dosage: 3 TABLETS OF 2.5MG ON SATURDAY AND 3 TABLETS OF 2.5MG ON SUNDAY, WEEKLY
     Route: 048
     Dates: start: 2001
  5. PREDNISOLON                        /00016201/ [Concomitant]
     Indication: RHEUMATOID ARTHRITIS
     Dosage: UNK UNK, BID
     Route: 048
     Dates: start: 1998
  6. DICLOFENAC [Concomitant]
     Indication: PAIN
     Dosage: UNK
     Route: 048
     Dates: start: 2006, end: 2008
  7. ACETAMINOPHEN [Concomitant]
     Indication: PAIN
     Dosage: UNK UNK, AS NECESSARY
     Route: 048
     Dates: start: 2008
  8. NAPROXEN [Concomitant]
     Indication: ARTHRALGIA
     Dosage: 500 MG, 1X/DAY
     Route: 048
     Dates: start: 2010

REACTIONS (10)
  - Blindness [Not Recovered/Not Resolved]
  - Alopecia [Not Recovered/Not Resolved]
  - Malaise [Not Recovered/Not Resolved]
  - Bone pain [Not Recovered/Not Resolved]
  - Dizziness [Not Recovered/Not Resolved]
  - Liver disorder [Not Recovered/Not Resolved]
  - Gait disturbance [Not Recovered/Not Resolved]
  - Wrong technique in drug usage process [Not Recovered/Not Resolved]
  - Pain of skin [Not Recovered/Not Resolved]
  - Blood glucose increased [Not Recovered/Not Resolved]
